FAERS Safety Report 4912202-6 (Version None)
Quarter: 2006Q1

REPORT INFORMATION
  Report Type: 
  Country: None (occurrence: None)
  Receive Date: 20060215
  Receipt Date: 20050926
  Transmission Date: 20060701
  Serious: No
  Sender: FDA-Public Use
  Company Number: US-GLAXOSMITHKLINE-A0576317A

PATIENT
  Age: 43 Year
  Sex: Female

DRUGS (2)
  1. VALTREX [Suspect]
     Dosage: 5MG UNKNOWN
     Route: 048
     Dates: start: 20050826, end: 20050829
  2. VESICARE [Concomitant]
     Route: 065

REACTIONS (2)
  - HEADACHE [None]
  - NAUSEA [None]
